FAERS Safety Report 6129899-8 (Version None)
Quarter: 2009Q1

REPORT INFORMATION
  Report Type: 
  Country: None (occurrence: None)
  Receive Date: 20090324
  Receipt Date: 20090319
  Transmission Date: 20090719
  Serious: Yes (Death)
  Sender: FDA-Public Use
  Company Number: US-BAYER-200823910GPV

PATIENT
  Age: 63 Year
  Sex: Male
  Weight: 72 kg

DRUGS (27)
  1. CAMPATH [Suspect]
     Indication: CHRONIC LYMPHOCYTIC LEUKAEMIA
     Dosage: DOSE ESCALATION 3, 10, 30
     Route: 042
     Dates: start: 20080408, end: 20080410
  2. CAMPATH [Suspect]
     Route: 042
     Dates: start: 20080415, end: 20080417
  3. CAMPATH [Suspect]
     Route: 042
     Dates: start: 20080513, end: 20080515
  4. CAMPATH [Suspect]
     Route: 042
     Dates: start: 20080610, end: 20080611
  5. CAMPATH [Suspect]
     Route: 042
     Dates: start: 20080612, end: 20080612
  6. CAMPATH [Suspect]
     Route: 042
     Dates: start: 20080708, end: 20080710
  7. FLUDARA [Suspect]
     Indication: CHRONIC LYMPHOCYTIC LEUKAEMIA
     Route: 042
     Dates: start: 20080415, end: 20080417
  8. FLUDARA [Suspect]
     Route: 042
     Dates: start: 20080513, end: 20080515
  9. FLUDARA [Suspect]
     Route: 042
     Dates: start: 20080610, end: 20080612
  10. FLUDARA [Suspect]
     Route: 042
     Dates: start: 20080708, end: 20080710
  11. RIBOXIN [Concomitant]
     Route: 065
     Dates: start: 20080727, end: 20080729
  12. ASPIRIN [Concomitant]
     Indication: ANGINA PECTORIS
     Route: 065
     Dates: start: 20080727, end: 20080729
  13. PANANGIN [Concomitant]
     Indication: ANGINA PECTORIS
     Route: 065
     Dates: start: 20080727, end: 20080729
  14. DEXTROSE 5% [Concomitant]
     Indication: ANGINA PECTORIS
     Dosage: SOLUTION 5%
     Route: 042
     Dates: start: 20080727, end: 20080729
  15. PAPAVERIN [Concomitant]
     Route: 065
     Dates: start: 20080727, end: 20080728
  16. PLATIPHILIN [Concomitant]
     Route: 065
     Dates: start: 20080727, end: 20080728
  17. DIPYRONE INJ [Concomitant]
     Indication: ANGINA PECTORIS
     Route: 065
     Dates: start: 20080727, end: 20080728
  18. DIMEDROL [Concomitant]
     Dates: start: 20080727, end: 20080729
  19. NITROSORBIT [Concomitant]
     Indication: ANGINA PECTORIS
     Route: 065
     Dates: start: 20080727, end: 20080728
  20. VITAMIN B1 TAB [Concomitant]
     Route: 065
     Dates: start: 20080727, end: 20080728
  21. RED BLOOD CELLS [Concomitant]
     Indication: ANAEMIA
     Route: 042
     Dates: start: 20080728, end: 20080728
  22. DEXAMETHASONE [Concomitant]
     Dosage: UNK
     Dates: start: 20080727, end: 20080729
  23. OMNOPONI [Concomitant]
     Dosage: 1%
  24. SIBAZON [Concomitant]
     Dosage: UNKNOWN
     Dates: start: 20080727, end: 20080729
  25. PROMEDOL [Concomitant]
     Dosage: UNK
  26. COCARBOXYLASE [Concomitant]
  27. MILDRONAT [Concomitant]
     Dates: start: 20080727, end: 20080728

REACTIONS (1)
  - ANGINA PECTORIS [None]
